FAERS Safety Report 9126857 (Version 2)
Quarter: 2013Q4

REPORT INFORMATION
  Report Type: Spontaneous
  Country: US (occurrence: US)
  Receive Date: 20130228
  Receipt Date: 20131203
  Transmission Date: 20140711
  Serious: No
  Sender: FDA-Public Use
  Company Number: US-TEVA-388815USA

PATIENT
  Sex: 0

DRUGS (3)
  1. COPAXONE [Suspect]
     Indication: MULTIPLE SCLEROSIS
     Dosage: 20 MILLIGRAM DAILY;
     Route: 058
  2. VITAMIN D [Concomitant]
     Dosage: 3000 IU (INTERNATIONAL UNIT) DAILY;
  3. OLIVE LEAVES EXTRACT [Concomitant]

REACTIONS (5)
  - Immediate post-injection reaction [Recovered/Resolved]
  - Anxiety [Recovered/Resolved]
  - Palpitations [Recovered/Resolved]
  - Heart rate increased [Recovered/Resolved]
  - Delusion [Recovered/Resolved]
